FAERS Safety Report 5474737-X (Version None)
Quarter: 2007Q4

REPORT INFORMATION
  Report Type: 
  Country: None (occurrence: None)
  Receive Date: 20071002
  Receipt Date: 20070925
  Transmission Date: 20080405
  Serious: Yes (Hospitalization)
  Sender: FDA-Public Use
  Company Number: A0605615A

PATIENT
  Age: 72 Year
  Sex: Male

DRUGS (6)
  1. COREG [Suspect]
     Dosage: 12.5MG TWICE PER DAY
     Route: 048
     Dates: start: 20040101
  2. MULTIVITAMIN [Suspect]
     Indication: SUPPLEMENTATION THERAPY
     Dosage: 2TAB PER DAY
     Dates: start: 20040101
  3. ANTIBIOTIC [Suspect]
     Dosage: 500MG UNKNOWN
     Route: 065
  4. DILANTIN [Concomitant]
  5. VYTORIN [Concomitant]
  6. LOTREL [Concomitant]

REACTIONS (7)
  - ABNORMAL DREAMS [None]
  - ANAEMIA [None]
  - CHOLELITHIASIS [None]
  - PLATELET COUNT DECREASED [None]
  - POLLAKIURIA [None]
  - PRURITUS GENERALISED [None]
  - SKIN ULCER [None]
